FAERS Safety Report 7663746-8 (Version None)
Quarter: 2011Q3

REPORT INFORMATION
  Report Type: 
  Country: None (occurrence: None)
  Receive Date: 20110805
  Receipt Date: 20100801
  Transmission Date: 20111222
  Serious: No
  Sender: FDA-Public Use
  Company Number: US-ABBOTT-10P-163-0660870-00

PATIENT
  Sex: Female
  Weight: 77.18 kg

DRUGS (10)
  1. NIASPAN [Suspect]
     Indication: DYSLIPIDAEMIA
     Dosage: INTERRUPTED
     Dates: start: 20100724, end: 20100731
  2. ULTRAM [Concomitant]
     Indication: OSTEOPOROSIS
     Route: 048
  3. ULTRAM [Concomitant]
  4. VALIUM [Concomitant]
  5. AMBIEN [Concomitant]
     Indication: INSOMNIA
     Route: 048
  6. AVAPRO [Concomitant]
     Indication: HYPERTENSION
     Route: 048
  7. VALIUM [Concomitant]
     Indication: PAIN
     Route: 048
  8. PLAVIX [Concomitant]
     Indication: PRODUCT USED FOR UNKNOWN INDICATION
     Route: 048
  9. REMERON [Concomitant]
     Indication: ANXIETY
     Route: 048
  10. ASPIRIN [Concomitant]
     Indication: PRODUCT USED FOR UNKNOWN INDICATION
     Route: 048

REACTIONS (1)
  - MUSCLE SPASMS [None]
